FAERS Safety Report 6468244-5 (Version None)
Quarter: 2009Q4

REPORT INFORMATION
  Report Type: 
  Country: None (occurrence: None)
  Receive Date: 20091127
  Receipt Date: 20091110
  Transmission Date: 20100525
  Serious: Yes (Hospitalization)
  Sender: FDA-Public Use
  Company Number: 8054591

PATIENT
  Age: 18 Month
  Sex: Female

DRUGS (1)
  1. PREDNISOLONE [Suspect]
     Indication: NEPHROTIC SYNDROME

REACTIONS (9)
  - BRADYCARDIA [None]
  - COMA [None]
  - DEHYDRATION [None]
  - DEPRESSED LEVEL OF CONSCIOUSNESS [None]
  - HYPONATRAEMIA [None]
  - SOMNOLENCE [None]
  - SUPERIOR SAGITTAL SINUS THROMBOSIS [None]
  - TRANSVERSE SINUS THROMBOSIS [None]
  - VOMITING [None]
